FAERS Safety Report 18134747 (Version 1)
Quarter: 2020Q3

REPORT INFORMATION
  Report Type: Spontaneous
  Country: US (occurrence: US)
  Receive Date: 20200810
  Receipt Date: 20200810
  Transmission Date: 20201103
  Serious: Yes (Disabling, Other)
  Sender: FDA-Public Use
  Company Number: None

PATIENT
  Age: 38 Year
  Sex: Female
  Weight: 53.55 kg

DRUGS (1)
  1. DEXTROAMPHET SACCHARAT, AMPHET ASPARTATE, DEXTROAMPHET SULFATE AND AMPHET SULFAT [Suspect]
     Active Substance: AMPHETAMINE ASPARTATE\AMPHETAMINE SULFATE\DEXTROAMPHETAMINE SACCHARATE\DEXTROAMPHETAMINE SULFATE
     Indication: NARCOLEPSY
     Dosage: ?
     Route: 048
     Dates: start: 20200524

REACTIONS (9)
  - Therapy interrupted [None]
  - Headache [None]
  - Product substitution issue [None]
  - Fatigue [None]
  - Drug ineffective [None]
  - Vasoconstriction [None]
  - Nausea [None]
  - Hypoaesthesia [None]
  - Paraesthesia oral [None]

NARRATIVE: CASE EVENT DATE: 20200524
